FAERS Safety Report 10585306 (Version 1)
Quarter: 2014Q4

REPORT INFORMATION
  Report Type: Spontaneous
  Country: JP (occurrence: None)
  Receive Date: 20141113
  Receipt Date: 20141113
  Transmission Date: 20150529
  Serious: Yes (Hospitalization)
  Sender: FDA-Public Use
  Company Number: 201410IM007365

PATIENT
  Age: 70 Year

DRUGS (1)
  1. PIRESPA (PIFENIDONE) [Suspect]
     Active Substance: PIRFENIDONE
     Indication: IDIOPATHIC PULMONARY FIBROSIS
     Dates: start: 201409

REACTIONS (2)
  - Acute myocardial infarction [None]
  - Coronary artery disease [None]

NARRATIVE: CASE EVENT DATE: 20141018
